FAERS Safety Report 19803956 (Version 1)
Quarter: 2021Q3

REPORT INFORMATION
  Report Type: Spontaneous
  Country: BR (occurrence: BR)
  Receive Date: 20210908
  Receipt Date: 20210908
  Transmission Date: 20211014
  Serious: Yes (Hospitalization, Other)
  Sender: FDA-Public Use
  Company Number: BR-ACCORD-237554

PATIENT
  Sex: Female

DRUGS (1)
  1. TOPOTECAN [Suspect]
     Active Substance: TOPOTECAN HYDROCHLORIDE
     Indication: OVARIAN NEOPLASM
     Route: 042
     Dates: start: 20210812, end: 20210812

REACTIONS (4)
  - Breath sounds abnormal [Not Recovered/Not Resolved]
  - Tremor [Not Recovered/Not Resolved]
  - Dyspnoea [Not Recovered/Not Resolved]
  - Cyanosis [Not Recovered/Not Resolved]

NARRATIVE: CASE EVENT DATE: 20210812
